FAERS Safety Report 9202589 (Version 2)
Quarter: 2015Q3

REPORT INFORMATION
  Report Type: Report from Study
  Country: US (occurrence: US)
  Receive Date: 20130401
  Receipt Date: 20150904
  Transmission Date: 20151125
  Serious: Yes (Hospitalization)
  Sender: FDA-Public Use
  Company Number: US-ELI_LILLY_AND_COMPANY-US201303008236

PATIENT
  Age: 62 Year
  Sex: Female

DRUGS (11)
  1. PROTONIX [Concomitant]
     Active Substance: PANTOPRAZOLE SODIUM
  2. CALCIUM [Concomitant]
     Active Substance: CALCIUM
  3. MULTI VITAMIN [Concomitant]
     Active Substance: VITAMINS
  4. METOPROLOL [Concomitant]
     Active Substance: METOPROLOL
  5. ASPIRIN                            /00002701/ [Suspect]
     Active Substance: ASPIRIN
     Indication: PRODUCT USED FOR UNKNOWN INDICATION
     Dosage: 81 MG, QD
     Route: 065
  6. LYRICA [Concomitant]
     Active Substance: PREGABALIN
  7. VITAMIN D [Concomitant]
     Active Substance: CHOLECALCIFEROL
     Dosage: 3000 U, QD
  8. IRON [Concomitant]
     Active Substance: IRON
     Dosage: 325 MG, QD
  9. FORTEO [Suspect]
     Active Substance: TERIPARATIDE
     Indication: OSTEOPOROSIS
     Dosage: UNK UNK, QD
     Route: 065
     Dates: start: 201203
  10. FORTEO [Suspect]
     Active Substance: TERIPARATIDE
     Dosage: 20 UG, QD
     Route: 065
  11. FISH OIL [Concomitant]
     Active Substance: FISH OIL
     Dosage: 1000 MG, BID

REACTIONS (9)
  - Pain [Unknown]
  - Femur fracture [Unknown]
  - Gait disturbance [Unknown]
  - Limb injury [Unknown]
  - Arthralgia [Unknown]
  - Activities of daily living impaired [Unknown]
  - Arthritis [Unknown]
  - Fall [Unknown]
  - Joint swelling [Unknown]

NARRATIVE: CASE EVENT DATE: 20121118
